FAERS Safety Report 8339647-9 (Version None)
Quarter: 2012Q2

REPORT INFORMATION
  Report Type: 
  Country: None (occurrence: None)
  Receive Date: 20120507
  Receipt Date: 20120504
  Transmission Date: 20120825
  Serious: Yes (Death, Other)
  Sender: FDA-Public Use
  Company Number: PHHY2011PH93258

PATIENT
  Sex: Female

DRUGS (4)
  1. GLEEVEC [Suspect]
     Dosage: 600 MG, DAILY
     Route: 048
  2. GLEEVEC [Suspect]
     Dosage: 400 MG, UNK
     Route: 048
  3. GLEEVEC [Suspect]
     Indication: CHRONIC MYELOID LEUKAEMIA
     Dosage: 400 MG, QD
     Route: 048
     Dates: start: 20080220
  4. GLEEVEC [Suspect]
     Dosage: 300 MG, DAILY
     Route: 048

REACTIONS (8)
  - NEOPLASM MALIGNANT [None]
  - HEADACHE [None]
  - PAIN [None]
  - NO THERAPEUTIC RESPONSE [None]
  - ANAEMIA [None]
  - ASTHENIA [None]
  - DEATH [None]
  - CHRONIC MYELOID LEUKAEMIA [None]
